FAERS Safety Report 13660706 (Version 1)
Quarter: 2017Q2

REPORT INFORMATION
  Report Type: Report from Study
  Country: CA (occurrence: CA)
  Receive Date: 20170616
  Receipt Date: 20170616
  Transmission Date: 20170830
  Serious: Yes (Other)
  Sender: FDA-Public Use
  Company Number: CA-SA-2016SA227064

PATIENT
  Age: 39 Year
  Sex: Male

DRUGS (15)
  1. VITAMIN B12 [Concomitant]
     Active Substance: CYANOCOBALAMIN
  2. VITAMIN D [Concomitant]
     Active Substance: CHOLECALCIFEROL
  3. OMEGA 3 [Concomitant]
     Active Substance: OMEGA-3 FATTY ACIDS
  4. CALCIUM [Concomitant]
     Active Substance: CALCIUM
  5. GRAVOL [Concomitant]
     Active Substance: DIMENHYDRINATE
     Indication: PREMEDICATION
     Route: 048
     Dates: start: 20161205, end: 20161209
  6. METHYLPREDNISOLONE. [Concomitant]
     Active Substance: METHYLPREDNISOLONE
     Indication: PREMEDICATION
     Route: 042
     Dates: start: 20161205, end: 20161209
  7. RANITIDINE. [Concomitant]
     Active Substance: RANITIDINE
     Indication: PREMEDICATION
     Route: 048
     Dates: start: 20161205, end: 20161209
  8. MAGNESIUM [Concomitant]
     Active Substance: MAGNESIUM
  9. LEMTRADA [Suspect]
     Active Substance: ALEMTUZUMAB
     Indication: RELAPSING-REMITTING MULTIPLE SCLEROSIS
     Route: 041
     Dates: start: 20161205, end: 20161209
  10. ACYCLOVIR. [Concomitant]
     Active Substance: ACYCLOVIR
     Indication: PREMEDICATION
     Route: 048
     Dates: start: 20161205
  11. ACETAMINOPHEN. [Concomitant]
     Active Substance: ACETAMINOPHEN
     Indication: PREMEDICATION
     Dosage: DOSE;:975MG-1GM
     Route: 048
     Dates: start: 20161205, end: 20161209
  12. VITAMIN C [Concomitant]
     Active Substance: ASCORBIC ACID
  13. BETACAROTENE [Concomitant]
     Active Substance: .BETA.-CAROTENE
  14. BENADRYL [Concomitant]
     Active Substance: DIPHENHYDRAMINE HYDROCHLORIDE
     Indication: PREMEDICATION
     Dosage: ROUTE: PO/IV
     Dates: start: 20161205
  15. FLAXSEED [Concomitant]
     Active Substance: FLAX SEED

REACTIONS (15)
  - Acne [Not Recovered/Not Resolved]
  - Neutrophil count decreased [Not Recovered/Not Resolved]
  - Dry mouth [Recovered/Resolved]
  - Infusion site pruritus [Recovered/Resolved]
  - Neutropenia [Unknown]
  - Urine abnormality [Not Recovered/Not Resolved]
  - Bacterial test [Unknown]
  - Rash erythematous [Recovered/Resolved]
  - Urticaria [Recovered/Resolved]
  - Lymphocyte count decreased [Not Recovered/Not Resolved]
  - Heart rate increased [Recovered/Resolved]
  - White blood cell count decreased [Not Recovered/Not Resolved]
  - Urine ketone body present [Recovered/Resolved]
  - Dysgeusia [Recovered/Resolved]
  - Infusion site urticaria [Recovered/Resolved]

NARRATIVE: CASE EVENT DATE: 20161205
